FAERS Safety Report 8966591 (Version 2)
Quarter: 2013Q1

REPORT INFORMATION
  Report Type: Spontaneous
  Country: BE (occurrence: BE)
  Receive Date: 20121214
  Receipt Date: 20130128
  Transmission Date: 20140127
  Serious: Yes (Other)
  Sender: FDA-Public Use
  Company Number: PHHY2012BE113187

PATIENT
  Age: 23 Year
  Sex: Female

DRUGS (1)
  1. TASIGNA [Suspect]
     Indication: CHRONIC MYELOID LEUKAEMIA
     Dosage: 400 MG, BID
     Route: 048
     Dates: start: 20121118, end: 20121121

REACTIONS (12)
  - Neuralgia [Not Recovered/Not Resolved]
  - Muscle tightness [Unknown]
  - Burning sensation [Unknown]
  - Oropharyngeal pain [Unknown]
  - Malaise [Unknown]
  - Headache [Unknown]
  - Influenza like illness [Unknown]
  - Blood pressure increased [Unknown]
  - Skin discolouration [Unknown]
  - Platelet count decreased [Unknown]
  - Red blood cell count decreased [Unknown]
  - Blood creatine phosphokinase increased [Unknown]
